FAERS Safety Report 4925943-1 (Version None)
Quarter: 2006Q1

REPORT INFORMATION
  Report Type: 
  Country: None (occurrence: None)
  Receive Date: 20060228
  Receipt Date: 20050419
  Transmission Date: 20060701
  Serious: Yes (Disabling)
  Sender: FDA-Public Use
  Company Number: US-GLAXOSMITHKLINE-A0554833A

PATIENT
  Age: 28 Year
  Sex: Male
  Weight: 86.4 kg

DRUGS (4)
  1. LAMICTAL [Suspect]
     Indication: BIPOLAR DISORDER
     Route: 048
     Dates: end: 20050418
  2. DEPAKOTE [Suspect]
     Route: 048
     Dates: end: 20050307
  3. SEROQUEL [Concomitant]
     Dates: start: 20040602
  4. WELLBUTRIN XL [Concomitant]
     Dosage: 150MG PER DAY
     Dates: start: 20040111

REACTIONS (6)
  - BLISTER [None]
  - DEPRESSION [None]
  - NAUSEA [None]
  - PYREXIA [None]
  - RASH [None]
  - VOMITING [None]
